FAERS Safety Report 7282353-2 (Version None)
Quarter: 2011Q1

REPORT INFORMATION
  Report Type: 
  Country: None (occurrence: None)
  Receive Date: 20110209
  Receipt Date: 20110131
  Transmission Date: 20110831
  Serious: Yes (Hospitalization)
  Sender: FDA-Public Use
  Company Number: US-ELI_LILLY_AND_COMPANY-US200808004685

PATIENT
  Sex: Male
  Weight: 73.469 kg

DRUGS (32)
  1. ASPIRIN                                 /SCH/ [Concomitant]
     Dosage: 81 MG, DAILY (1/D)
     Route: 048
  2. ADVIL LIQUI-GELS [Concomitant]
     Dosage: UNK, AS NEEDED
  3. PROPOXYPHENE HYDROCHLORIDE W/PARACETAMOL [Concomitant]
  4. RELPAX [Concomitant]
  5. ZOFRAN [Concomitant]
     Dosage: UNK, UNKNOWN
  6. KINEVAC [Concomitant]
     Dosage: UNK, UNKNOWN
  7. AVANDIA [Concomitant]
     Dosage: UNK, UNKNOWN
  8. EFFEXOR [Concomitant]
  9. PROMETHAZINE [Concomitant]
     Dosage: UNK, UNKNOWN
  10. COZAAR [Concomitant]
     Dosage: UNK, UNKNOWN
  11. NOVOLIN R [Concomitant]
     Dosage: UNK, UNKNOWN
  12. BYETTA [Suspect]
     Dosage: 10 UG, 2/D
     Route: 058
     Dates: start: 20070409, end: 20071204
  13. REQUIP [Concomitant]
     Dosage: 2 MG, DAILY (1/D)
     Route: 048
  14. LIPITOR [Concomitant]
     Dosage: 20 MG, DAILY (1/D)
     Route: 048
  15. BYETTA [Suspect]
     Dosage: 5 UG, 2/D
     Route: 058
     Dates: start: 20070301, end: 20070408
  16. CELEBREX [Concomitant]
  17. LEVITRA [Concomitant]
  18. NITRO-BID [Concomitant]
     Dosage: UNK, UNKNOWN
  19. AVAPRO [Concomitant]
     Dosage: 150 MG, DAILY (1/D)
     Route: 048
  20. DURADRIN [Concomitant]
  21. PROTOPIC [Concomitant]
  22. GLIMEPIRIDE [Concomitant]
     Dosage: 4 MG, DAILY (1/D)
     Route: 048
  23. METFORMIN HCL [Concomitant]
     Dosage: 500 MG, 2/D
     Route: 048
  24. HYDROCODONE BITARTRATE AND ACETAMINOPHEN [Concomitant]
  25. SKELAXIN [Concomitant]
  26. NORTRIPTYLINE [Concomitant]
  27. DESONIDE [Concomitant]
  28. PROTONIX [Concomitant]
     Dosage: 40 MG, DAILY (1/D)
     Route: 048
  29. GABAPENTIN [Concomitant]
  30. AMOXICILLIN COMP [Concomitant]
  31. HYDROMORPHONE HYDROCHLORIDE [Concomitant]
  32. AMBIEN [Concomitant]
     Dosage: UNK, UNKNOWN

REACTIONS (6)
  - DIARRHOEA [None]
  - CHOLECYSTITIS CHRONIC [None]
  - ABDOMINAL PAIN [None]
  - WEIGHT DECREASED [None]
  - PANCREATITIS [None]
  - GALLBLADDER DISORDER [None]
